FAERS Safety Report 7286888-8 (Version None)
Quarter: 2011Q1

REPORT INFORMATION
  Report Type: 
  Country: None (occurrence: None)
  Receive Date: 20110211
  Receipt Date: 20110131
  Transmission Date: 20110831
  Serious: Yes (Hospitalization)
  Sender: FDA-Public Use
  Company Number: US-BIOGENIDEC-2010BI043758

PATIENT
  Sex: Female

DRUGS (1)
  1. TYSABRI [Suspect]
     Indication: MULTIPLE SCLEROSIS
     Route: 042
     Dates: start: 20100618

REACTIONS (5)
  - DISORIENTATION [None]
  - MEMORY IMPAIRMENT [None]
  - POOR VENOUS ACCESS [None]
  - FALL [None]
  - DRUG SPECIFIC ANTIBODY PRESENT [None]
